FAERS Safety Report 8284233-2 (Version None)
Quarter: 2012Q2

REPORT INFORMATION
  Report Type: 
  Country: None (occurrence: None)
  Receive Date: 20120413
  Receipt Date: 20120123
  Transmission Date: 20120825
  Serious: No
  Sender: FDA-Public Use
  Company Number: US-ASTRAZENECA-2010SE29403

PATIENT
  Age: 64 Year
  Sex: Female
  Weight: 88.5 kg

DRUGS (9)
  1. NAPROXEN [Concomitant]
  2. DETROL [Concomitant]
  3. NEXIUM [Suspect]
     Indication: GASTROOESOPHAGEAL REFLUX DISEASE
     Route: 048
     Dates: end: 20100623
  4. PRILOSEC [Suspect]
     Route: 048
  5. BYSTOLIC [Concomitant]
  6. PREMARIN [Concomitant]
  7. LIPITOR [Concomitant]
  8. NORVASC [Concomitant]
  9. AMBIEN [Concomitant]

REACTIONS (3)
  - DIARRHOEA [None]
  - INCORRECT DOSE ADMINISTERED [None]
  - RASH [None]
